FAERS Safety Report 9466730 (Version 2)
Quarter: 2013Q3

REPORT INFORMATION
  Report Type: Spontaneous
  Country: US (occurrence: US)
  Receive Date: 20130820
  Receipt Date: 20130820
  Transmission Date: 20140515
  Serious: No
  Sender: FDA-Public Use
  Company Number: US-TEVA-395970USA

PATIENT
  Age: 66 Year
  Sex: Female

DRUGS (15)
  1. FLUCONAZOLE [Suspect]
     Indication: INFECTION
     Dosage: QOD
     Dates: start: 20130322
  2. METRONIDAZOLE [Suspect]
     Indication: INFECTION
     Dosage: 1000 MILLIGRAM DAILY;
     Dates: start: 20130320, end: 20130321
  3. ZANAPLEX [Concomitant]
  4. KADIAN [Concomitant]
  5. LEXAPRO [Concomitant]
  6. SPIRIVA [Concomitant]
  7. VASOTEC [Concomitant]
  8. CYMBALTA [Concomitant]
  9. LORTAB [Concomitant]
  10. PREMARIN [Concomitant]
  11. NEXIUM [Concomitant]
  12. ZONISAMIDE [Concomitant]
  13. VITAMIN E [Concomitant]
  14. VITAMIN D3 [Concomitant]
  15. ROPINIROLE [Concomitant]

REACTIONS (9)
  - Scab [Recovered/Resolved]
  - Miliaria [Recovered/Resolved with Sequelae]
  - Rash erythematous [Recovered/Resolved with Sequelae]
  - Blister [Recovered/Resolved]
  - Skin exfoliation [Recovered/Resolved]
  - Infection [Unknown]
  - Skin irritation [Unknown]
  - Adverse event [Unknown]
  - Rash erythematous [Unknown]
